FAERS Safety Report 9067579 (Version 3)
Quarter: 2014Q3

REPORT INFORMATION
  Report Type: Spontaneous
  Country: US (occurrence: US)
  Receive Date: 20130129
  Receipt Date: 20140821
  Transmission Date: 20150326
  Serious: Yes (Other)
  Sender: FDA-Public Use
  Company Number: PHEH2013US002075

PATIENT
  Age: 59 Year
  Sex: Female

DRUGS (1)
  1. RECLAST [Suspect]
     Active Substance: ZOLEDRONIC ACID
     Indication: OSTEOPOROSIS
     Dosage: UNK UKN, UNK
     Route: 041
     Dates: start: 20120222

REACTIONS (28)
  - Angle closure glaucoma [Unknown]
  - Pain in extremity [Unknown]
  - Peripheral sensory neuropathy [Unknown]
  - Femoroacetabular impingement [Unknown]
  - Malabsorption [Unknown]
  - Vomiting [Unknown]
  - Pain [Unknown]
  - Osteoarthritis [Unknown]
  - Paraesthesia [Unknown]
  - Arthralgia [Unknown]
  - Senile osteoporosis [Unknown]
  - Anger [Unknown]
  - Joint swelling [Unknown]
  - Carpal tunnel syndrome [Unknown]
  - Hypoaesthesia [Unknown]
  - Gait disturbance [Unknown]
  - Iritis [Unknown]
  - Depressed mood [Unknown]
  - Discomfort [Unknown]
  - Abdominal pain [Unknown]
  - Headache [Unknown]
  - Frustration [Unknown]
  - Vitamin D deficiency [Unknown]
  - Eye pain [Unknown]
  - Synovitis [Unknown]
  - Ovarian mass [Unknown]
  - Erythema [Unknown]
  - Osteopenia [Unknown]

NARRATIVE: CASE EVENT DATE: 20120227
